FAERS Safety Report 5081537-1 (Version None)
Quarter: 2006Q3

REPORT INFORMATION
  Report Type: 
  Country: None (occurrence: None)
  Receive Date: 20060811
  Receipt Date: 20060728
  Transmission Date: 20061208
  Serious: Yes (Death)
  Sender: FDA-Public Use
  Company Number: 2006S1007077

PATIENT
  Age: 41 Year
  Sex: Female

DRUGS (7)
  1. CLOZAPINE [Suspect]
     Indication: SCHIZOPHRENIA, PARANOID TYPE
     Dosage: 600  MG; QD; PO
     Route: 048
     Dates: start: 20030201, end: 20060701
  2. PIOGLITAZONE (CON.) [Concomitant]
  3. GLIMEPIRIDE (CON.) [Concomitant]
  4. CARBIDOPA/LEVODOPA (CON.) [Concomitant]
  5. TOPIRAMATE (CON.) [Concomitant]
  6. TRAMADOL (CON.) [Concomitant]
  7. HUMAN MIXTARD 30/70 (CON.) [Concomitant]

REACTIONS (1)
  - DEATH [None]
